FAERS Safety Report 20450569 (Version 3)
Quarter: 2022Q4

REPORT INFORMATION
  Report Type: Report from Study
  Country: US (occurrence: US)
  Receive Date: 20220209
  Receipt Date: 20221020
  Transmission Date: 20230113
  Serious: Yes (Other)
  Sender: FDA-Public Use
  Company Number: US-KYOWAKIRIN-2022BKK001154

PATIENT

DRUGS (1)
  1. CRYSVITA [Suspect]
     Active Substance: BUROSUMAB-TWZA
     Indication: Hereditary hypophosphataemic rickets
     Dosage: 90 MG/ML, EVERY 28 DAYS
     Route: 065
     Dates: start: 20180820

REACTIONS (2)
  - Spinal stenosis [Unknown]
  - Blood phosphorus decreased [Not Recovered/Not Resolved]
